FAERS Safety Report 5030751-X (Version None)
Quarter: 2006Q2

REPORT INFORMATION
  Report Type: 
  Country: None (occurrence: None)
  Receive Date: 20060615
  Receipt Date: 20060605
  Transmission Date: 20061013
  Serious: Yes (Hospitalization)
  Sender: FDA-Public Use
  Company Number: 2006073351

PATIENT
  Age: 59 Year
  Sex: Female

DRUGS (6)
  1. NEURONTIN [Suspect]
     Indication: ILL-DEFINED DISORDER
     Dosage: 300 MG (300 MG, 1 IN 1 D), ORAL
     Route: 048
  2. ATENOLOL [Suspect]
     Indication: ILL-DEFINED DISORDER
     Dosage: 50 MG (1 IN 1 D), ORAL
     Route: 048
  3. TAMOXIFEN CITRATE [Suspect]
     Indication: ILL-DEFINED DISORDER
     Dosage: 20 MG (1 IN 1 D), ORAL
     Route: 048
  4. KAYEXALATE [Suspect]
     Indication: ILL-DEFINED DISORDER
     Dosage: 1 DF (1 IN 1 D), ORAL
     Route: 048
  5. HYDROCORTISONE ACETATE [Suspect]
     Indication: ILL-DEFINED DISORDER
     Dosage: 20 MG (10 MG, 2 IN 1 D), ORAL
     Route: 048
  6. RENAGEL [Suspect]
     Indication: ILL-DEFINED DISORDER
     Dosage: 2400 MG (800 MG, 3 IN 1 D), ORAL
     Route: 048

REACTIONS (7)
  - ANAEMIA MACROCYTIC [None]
  - CHILLS [None]
  - INFECTION [None]
  - LEUKOPENIA [None]
  - NEUTROPENIA [None]
  - PYREXIA [None]
  - TREMOR [None]
